FAERS Safety Report 19584717 (Version 2)
Quarter: 2021Q3

REPORT INFORMATION
  Report Type: Spontaneous
  Country: CA (occurrence: CA)
  Receive Date: 20210720
  Receipt Date: 20210817
  Transmission Date: 20211014
  Serious: Yes (Hospitalization, Other)
  Sender: FDA-Public Use
  Company Number: CA-SAOL THERAPEUTICS-2021SAO00251

PATIENT
  Age: 0 Year
  Sex: Female
  Weight: 3.95 kg

DRUGS (1)
  1. WINRHO SDF [Suspect]
     Active Substance: HUMAN RHO(D) IMMUNE GLOBULIN
     Indication: PROPHYLAXIS AGAINST RH ISOIMMUNISATION
     Dosage: 300 ?G; 4/4 FRACTION, 13 ML
     Route: 015
     Dates: start: 20210423, end: 20210423

REACTIONS (13)
  - Vomiting [Recovered/Resolved]
  - Atrial septal defect [Unknown]
  - Metabolic disorder [Unknown]
  - ABO incompatibility [Not Recovered/Not Resolved]
  - Restlessness [Unknown]
  - Hyperbilirubinaemia [Recovering/Resolving]
  - Hyperthermia [Recovered/Resolved]
  - Therapeutic product ineffective [Not Recovered/Not Resolved]
  - Alloimmunisation [Recovering/Resolving]
  - Tachypnoea [Recovering/Resolving]
  - Large for dates baby [Not Recovered/Not Resolved]
  - Insomnia [Unknown]
  - Jaundice [Recovering/Resolving]

NARRATIVE: CASE EVENT DATE: 202106
